FAERS Safety Report 15002835 (Version 2)
Quarter: 2018Q3

REPORT INFORMATION
  Report Type: Not Available
  Country: US (occurrence: US)
  Receive Date: 20180612
  Receipt Date: 20180712
  Transmission Date: 20181010
  Serious: Yes (Hospitalization)
  Sender: FDA-Public Use
  Company Number: US-NEUROCRINE BIOSCIENCES INC.-2018NBI01735

PATIENT
  Age: 33 Year
  Sex: Female

DRUGS (6)
  1. PRILOSEC [Suspect]
     Active Substance: OMEPRAZOLE MAGNESIUM
     Indication: PRODUCT USED FOR UNKNOWN INDICATION
  2. INGREZZA [Suspect]
     Active Substance: VALBENAZINE
     Indication: PRODUCT USED FOR UNKNOWN INDICATION
     Route: 048
     Dates: start: 20180510, end: 20180516
  3. INGREZZA [Suspect]
     Active Substance: VALBENAZINE
     Route: 048
     Dates: start: 20180517
  4. DAPSONE. [Concomitant]
     Active Substance: DAPSONE
  5. HYDROXYZINE [Concomitant]
     Active Substance: HYDROXYZINE HYDROCHLORIDE
  6. TRILEPTAL [Concomitant]
     Active Substance: OXCARBAZEPINE

REACTIONS (3)
  - Hospitalisation [Unknown]
  - Drug interaction [Unknown]
  - Rash [Unknown]

NARRATIVE: CASE EVENT DATE: 201805
